FAERS Safety Report 18218078 (Version 1)
Quarter: 2020Q3

REPORT INFORMATION
  Report Type: Spontaneous
  Country: US (occurrence: US)
  Receive Date: 20200831
  Receipt Date: 20200831
  Transmission Date: 20201103
  Serious: Yes (Hospitalization)
  Sender: FDA-Public Use
  Company Number: None

PATIENT
  Age: 75 Year
  Sex: Male
  Weight: 82.55 kg

DRUGS (1)
  1. PRIMIDONE (PRIMIDONE 50MG TAB) [Suspect]
     Active Substance: PRIMIDONE
     Indication: ESSENTIAL TREMOR
     Dosage: FREQUENCY: AT BEDTIME
     Route: 048
     Dates: start: 20200102, end: 20200224

REACTIONS (8)
  - Dyspnoea [None]
  - Rash [None]
  - Hypersensitivity [None]
  - Pruritus [None]
  - Leukocytosis [None]
  - Fatigue [None]
  - Drug reaction with eosinophilia and systemic symptoms [None]
  - Urticaria [None]

NARRATIVE: CASE EVENT DATE: 20200207
